FAERS Safety Report 24341118 (Version 1)
Quarter: 2024Q3

REPORT INFORMATION
  Report Type: Spontaneous
  Country: US (occurrence: US)
  Receive Date: 20240919
  Receipt Date: 20240919
  Transmission Date: 20241017
  Serious: No
  Sender: ABBVIE
  Company Number: US-ABBVIE-5929622

PATIENT
  Age: 51 Year
  Sex: Female
  Weight: 68 kg

DRUGS (6)
  1. BOTOX COSMETIC [Suspect]
     Active Substance: ONABOTULINUMTOXINA
     Indication: Prophylaxis
     Dosage: TIME INTERVAL: AS NECESSARY: EVERY ONE YEAR?FORM STRENGTH: 100 MG
     Route: 065
     Dates: start: 2023, end: 2023
  2. BOTOX COSMETIC [Suspect]
     Active Substance: ONABOTULINUMTOXINA
     Indication: Prophylaxis
     Dosage: TIME INTERVAL: AS NECESSARY: FORM STRENGTH: 100 MG
     Route: 065
     Dates: start: 20240912, end: 20240912
  3. BOTOX COSMETIC [Suspect]
     Active Substance: ONABOTULINUMTOXINA
     Indication: Prophylaxis
     Dosage: TIME INTERVAL: AS NECESSARY: EVERY ONE YEAR?FORM STRENGTH: 100 MG
     Route: 065
     Dates: start: 202109, end: 202109
  4. OZEMPIC [Concomitant]
     Active Substance: SEMAGLUTIDE
     Indication: Glucose tolerance impaired
  5. HYOSCYAMINE [Concomitant]
     Active Substance: HYOSCYAMINE
     Indication: Product used for unknown indication
  6. LEVOTHYROXINE [Concomitant]
     Active Substance: LEVOTHYROXINE\LEVOTHYROXINE SODIUM
     Indication: Hypothyroidism

REACTIONS (2)
  - Dizziness [Recovered/Resolved]
  - Headache [Recovered/Resolved]

NARRATIVE: CASE EVENT DATE: 20240913
